FAERS Safety Report 5002871-7 (Version None)
Quarter: 2006Q2

REPORT INFORMATION
  Report Type: 
  Country: None (occurrence: None)
  Receive Date: 20060516
  Receipt Date: 20041124
  Transmission Date: 20061013
  Serious: Yes (Death, Hospitalization)
  Sender: FDA-Public Use
  Company Number: 2004AP06003

PATIENT
  Age: 21996 Day
  Sex: Female

DRUGS (23)
  1. IRESSA [Suspect]
     Indication: OROPHARYNGEAL CANCER STAGE UNSPECIFIED
     Route: 048
     Dates: start: 20041019, end: 20041118
  2. IRESSA [Suspect]
     Route: 048
     Dates: start: 20041202, end: 20041205
  3. TRAMADOL HCL [Concomitant]
     Indication: PAIN
     Dates: start: 20040801
  4. TRAMADOL HCL [Concomitant]
     Indication: INSOMNIA
     Dates: start: 20040801
  5. TRAMADOL HCL [Concomitant]
     Dates: start: 20041102, end: 20041104
  6. TRAMADOL HCL [Concomitant]
     Dates: start: 20041102, end: 20041104
  7. TRAMADOL HCL [Concomitant]
     Dates: start: 20041104, end: 20041202
  8. TRAMADOL HCL [Concomitant]
     Dates: start: 20041104, end: 20041202
  9. TRAMADOL HCL [Concomitant]
     Dates: start: 20041202
  10. TRAMADOL HCL [Concomitant]
     Dates: start: 20041202
  11. DEXAMETHASONE [Concomitant]
     Indication: STRIDOR
     Dates: start: 20040801
  12. DEXAMETHASONE [Concomitant]
     Indication: SWOLLEN TONGUE
     Dates: start: 20040801
  13. DEXAMETHASONE [Concomitant]
     Route: 048
     Dates: start: 20041001
  14. DEXAMETHASONE [Concomitant]
     Route: 048
     Dates: start: 20041001
  15. FLAGYL [Concomitant]
     Indication: OPEN WOUND
     Route: 048
     Dates: start: 20041001, end: 20041101
  16. FLAGYL [Concomitant]
     Route: 048
     Dates: start: 20041119, end: 20041126
  17. PARACETAMOL [Concomitant]
     Indication: CANCER PAIN
     Route: 048
     Dates: start: 20041001
  18. HALDOL [Concomitant]
     Indication: ABNORMAL DREAMS
     Route: 048
     Dates: start: 20041104
  19. FRAXIPARINE [Concomitant]
     Indication: THROMBOSIS PROPHYLAXIS
     Route: 057
     Dates: start: 20041119
  20. TRYPTANOL [Concomitant]
     Indication: ABNORMAL DREAMS
     Route: 048
     Dates: start: 20041203
  21. CIDOMYCINE [Concomitant]
     Indication: URINARY TRACT INFECTION
     Route: 048
     Dates: start: 20041201
  22. LOPERAMIDE [Concomitant]
     Indication: DIARRHOEA
     Route: 048
     Dates: start: 20041118, end: 20041122
  23. FUCIDIN OINTMENT [Concomitant]
     Indication: BULLOUS IMPETIGO
     Route: 048
     Dates: start: 20041119

REACTIONS (2)
  - BULLOUS IMPETIGO [None]
  - PNEUMONIA BACTERIAL [None]
